FAERS Safety Report 25910367 (Version 2)
Quarter: 2025Q4

REPORT INFORMATION
  Report Type: Spontaneous
  Country: US (occurrence: US)
  Receive Date: 20251012
  Receipt Date: 20251031
  Transmission Date: 20260117
  Serious: No
  Sender: BLUEPRINT MEDICINES CORPORATION
  Company Number: US-Blueprint Medicines Corporation-2025-AER-02223

PATIENT
  Age: 77 Year
  Sex: Female

DRUGS (1)
  1. AYVAKIT [Suspect]
     Active Substance: AVAPRITINIB
     Indication: Mastocytic leukaemia
     Route: 065
     Dates: start: 20241123

REACTIONS (4)
  - Bronchitis [Unknown]
  - Malaise [Unknown]
  - Vomiting [Unknown]
  - Illness [Unknown]
